FAERS Safety Report 9147381 (Version 1)
Quarter: 2013Q1

REPORT INFORMATION
  Report Type: Spontaneous
  Country: US (occurrence: US)
  Receive Date: 20130307
  Receipt Date: 20130307
  Transmission Date: 20140127
  Serious: No
  Sender: FDA-Public Use
  Company Number: US-009507513-1303USA001797

PATIENT
  Age: 85 Year
  Sex: Male

DRUGS (1)
  1. COSOPT [Suspect]
     Indication: INTRAOCULAR PRESSURE TEST
     Dosage: 1 DROP IN EACH EYE MORNING AND EVENING
     Route: 047
     Dates: start: 20130301

REACTIONS (2)
  - Eye irritation [Unknown]
  - Product quality issue [Unknown]
